FAERS Safety Report 10335345 (Version 2)
Quarter: 2014Q3

REPORT INFORMATION
  Report Type: Spontaneous
  Country: US (occurrence: US)
  Receive Date: 20140723
  Receipt Date: 20140723
  Transmission Date: 20150326
  Serious: No
  Sender: FDA-Public Use
  Company Number: US-UNITED THERAPEUTICS-UTC-043276

PATIENT
  Sex: Female
  Weight: 107.5 kg

DRUGS (2)
  1. ADCIRCA [Concomitant]
     Active Substance: TADALAFIL
  2. TYVASO [Suspect]
     Active Substance: TREPROSTINIL
     Dosage: 18-54 MICROGRAMS
     Dates: start: 20131226

REACTIONS (13)
  - Dysgeusia [Recovering/Resolving]
  - Urinary tract disorder [Unknown]
  - Treatment noncompliance [Unknown]
  - Cough [Unknown]
  - Throat irritation [Unknown]
  - Headache [Unknown]
  - Sinus congestion [Unknown]
  - Flushing [Unknown]
  - Syncope [Not Recovered/Not Resolved]
  - Micturition urgency [Unknown]
  - Nausea [Recovering/Resolving]
  - Oropharyngeal pain [Unknown]
  - Pain in jaw [Unknown]
